FAERS Safety Report 14008009 (Version 1)
Quarter: 2017Q3

REPORT INFORMATION
  Report Type: Spontaneous
  Country: US (occurrence: None)
  Receive Date: 20170925
  Receipt Date: 20170925
  Transmission Date: 20171128
  Serious: Yes (Life-Threatening)
  Sender: FDA-Public Use
  Company Number: None

PATIENT
  Age: 73 Year
  Sex: Female
  Weight: 68.04 kg

DRUGS (5)
  1. ASA [Concomitant]
     Active Substance: ASPIRIN
  2. ZNGLOCONATE [Concomitant]
  3. CRANBERRY. [Concomitant]
     Active Substance: CRANBERRY
  4. DMAMOSE [Concomitant]
  5. LISINOPRIL. [Suspect]
     Active Substance: LISINOPRIL
     Indication: HYPERTENSION
     Dosage: 1 PILL
     Route: 048
     Dates: start: 20130602, end: 20130606

REACTIONS (1)
  - Angioedema [None]

NARRATIVE: CASE EVENT DATE: 20130601
